FAERS Safety Report 19087504 (Version 6)
Quarter: 2021Q4

REPORT INFORMATION
  Report Type: Spontaneous
  Country: FR (occurrence: FR)
  Receive Date: 20210402
  Receipt Date: 20211227
  Transmission Date: 20220303
  Serious: Yes (Other)
  Sender: FDA-Public Use
  Company Number: FR-ABBVIE-21K-056-3844550-00

PATIENT

DRUGS (4)
  1. IMBRUVICA [Suspect]
     Active Substance: IBRUTINIB
     Indication: Central nervous system lymphoma
     Dosage: (28-DAY CYCLES)
     Route: 048
     Dates: start: 201506
  2. IMBRUVICA [Suspect]
     Active Substance: IBRUTINIB
     Indication: Central nervous system lymphoma
  3. TEMOZOLOMIDE [Suspect]
     Active Substance: TEMOZOLOMIDE
     Indication: Central nervous system lymphoma
     Dosage: DAY 1 TO 5 FOR CYCLE 1
     Route: 048
  4. TEMOZOLOMIDE [Suspect]
     Active Substance: TEMOZOLOMIDE
     Indication: Central nervous system lymphoma
     Dosage: FOR CYCLE 2
     Route: 048

REACTIONS (11)
  - Seizure [Unknown]
  - Febrile neutropenia [Unknown]
  - Tumour haemorrhage [Unknown]
  - Atrial fibrillation [Not Recovered/Not Resolved]
  - Sepsis [Unknown]
  - Haemorrhage [Unknown]
  - Urinary tract infection [Unknown]
  - Muscle spasms [Unknown]
  - Off label use [Unknown]
  - Product use in unapproved indication [Unknown]
  - Product use issue [Unknown]
